FAERS Safety Report 11339660 (Version 1)
Quarter: 2015Q3

REPORT INFORMATION
  Report Type: Spontaneous
  Country: US (occurrence: None)
  Receive Date: 20150804
  Receipt Date: 20150804
  Transmission Date: 20151125
  Serious: Yes (Disabling)
  Sender: FDA-Public Use
  Company Number: None

PATIENT
  Age: 42 Year
  Sex: Female
  Weight: 73.03 kg

DRUGS (7)
  1. QVAR [Concomitant]
     Active Substance: BECLOMETHASONE DIPROPIONATE
  2. ASPIRIN. [Concomitant]
     Active Substance: ASPIRIN
  3. ALBUTERAL [Concomitant]
     Active Substance: ALBUTEROL
  4. RETAIN A [Concomitant]
  5. METHADONE [Concomitant]
     Active Substance: METHADONE HYDROCHLORIDE
  6. LORAZAPANE [Concomitant]
  7. LEDIPASVIR/SOFOSBUVIR [Suspect]
     Active Substance: LEDIPASVIR\SOFOSBUVIR
     Indication: HEPATITIS C
     Dosage: 1 DAILY AT SAME TIME ONCE DAILY TAKEN BY MOUTH
     Route: 048

REACTIONS (5)
  - Restless legs syndrome [None]
  - Pain [None]
  - Dyspepsia [None]
  - Insomnia [None]
  - Muscle spasms [None]

NARRATIVE: CASE EVENT DATE: 20150722
